FAERS Safety Report 9579368 (Version 2)
Quarter: 2013Q4

REPORT INFORMATION
  Report Type: Spontaneous
  Country: US (occurrence: US)
  Receive Date: 20131001
  Receipt Date: 20131001
  Transmission Date: 20140711
  Serious: Yes (Other)
  Sender: FDA-Public Use
  Company Number: US-AMGEN-USASP2013002466

PATIENT
  Age: 34 Year
  Sex: Female
  Weight: 111.1 kg

DRUGS (3)
  1. ENBREL [Suspect]
     Indication: RHEUMATOID ARTHRITIS
     Dosage: 50 MG, QWK
     Route: 058
     Dates: start: 201208
  2. TYLENOL                            /00020001/ [Concomitant]
     Dosage: 325 MG, UNK
  3. ZITHROMAX [Concomitant]
     Dosage: UNK

REACTIONS (2)
  - Chest pain [Unknown]
  - Sinusitis [Unknown]
